FAERS Safety Report 4643928-X (Version None)
Quarter: 2005Q2

REPORT INFORMATION
  Report Type: 
  Country: None (occurrence: None)
  Receive Date: 20050425
  Receipt Date: 20050414
  Transmission Date: 20051028
  Serious: Yes (Other)
  Sender: FDA-Public Use
  Company Number: US-MERCK-0504USA02266

PATIENT
  Age: 22 Year
  Sex: Female

DRUGS (3)
  1. CANCIDAS [Suspect]
     Indication: FUNGAL INFECTION
     Route: 041
     Dates: start: 20040101
  2. ANTINEOPLASTIC (UNSPECIFIED) [Concomitant]
     Route: 065
  3. AMBISOME [Suspect]
     Route: 041
     Dates: start: 20040101

REACTIONS (1)
  - INFUSION SITE RASH [None]
